FAERS Safety Report 26110983 (Version 1)
Quarter: 2025Q4

REPORT INFORMATION
  Report Type: Spontaneous
  Country: US (occurrence: US)
  Receive Date: 20251202
  Receipt Date: 20251202
  Transmission Date: 20260118
  Serious: No
  Sender: UNICHEM
  Company Number: US-UNICHEM LABORATORIES LIMITED-UNI-2025-US-003352

PATIENT

DRUGS (1)
  1. MEMANTINE HYDROCHLORIDE [Suspect]
     Active Substance: MEMANTINE HYDROCHLORIDE
     Indication: Product used for unknown indication
     Dosage: UNK, BID (AT NIGHT AND MORNING)
     Route: 048

REACTIONS (1)
  - Chromaturia [Unknown]

NARRATIVE: CASE EVENT DATE: 20250101
